FAERS Safety Report 5076968-X (Version None)
Quarter: 2006Q3

REPORT INFORMATION
  Report Type: 
  Country: None (occurrence: None)
  Receive Date: 20060810
  Receipt Date: 20060503
  Transmission Date: 20061208
  Serious: Yes (Hospitalization)
  Sender: FDA-Public Use
  Company Number: FR-GLAXOSMITHKLINE-B0422923A

PATIENT
  Age: 59 Year
  Sex: Female

DRUGS (8)
  1. AUGMENTIN '125' [Suspect]
     Dosage: 2G PER DAY
     Route: 042
     Dates: start: 20060323, end: 20060323
  2. HYPNOVEL [Suspect]
     Dosage: 2G PER DAY
     Route: 042
     Dates: start: 20060323, end: 20060323
  3. KETAMINE HCL [Suspect]
     Dosage: 10MG PER DAY
     Route: 042
     Dates: start: 20060323, end: 20060323
  4. DIPRIVAN [Suspect]
     Dosage: 150MG PER DAY
     Route: 042
     Dates: start: 20060323, end: 20060323
  5. SUFENTA [Suspect]
     Route: 042
     Dates: start: 20060323, end: 20060323
  6. TRACRIUM [Concomitant]
     Route: 042
     Dates: start: 20060323, end: 20060323
  7. DESFLURANE [Concomitant]
     Route: 065
     Dates: start: 20060323, end: 20060323
  8. VENTOLIN [Concomitant]
     Indication: ASTHMA
     Route: 065

REACTIONS (2)
  - HYPOTENSION [None]
  - OXYGEN SATURATION DECREASED [None]
